FAERS Safety Report 5895783-8 (Version None)
Quarter: 2008Q3

REPORT INFORMATION
  Report Type: 
  Country: None (occurrence: None)
  Receive Date: 20080924
  Receipt Date: 20080917
  Transmission Date: 20090109
  Serious: Yes (Hospitalization, Other)
  Sender: FDA-Public Use
  Company Number: HQWYE286421MAY07

PATIENT
  Sex: Male

DRUGS (13)
  1. RAPAMUNE [Suspect]
     Indication: PROPHYLAXIS AGAINST TRANSPLANT REJECTION
     Route: 048
     Dates: start: 20070315
  2. PREDNISONE [Suspect]
     Indication: PROPHYLAXIS AGAINST TRANSPLANT REJECTION
     Route: 048
     Dates: start: 20070315
  3. GENGRAF [Suspect]
     Indication: PROPHYLAXIS AGAINST TRANSPLANT REJECTION
     Route: 065
     Dates: start: 20070504
  4. VALCYTE [Concomitant]
     Dosage: UNSPECIFIED DOSE AND REGIMEN
     Route: 065
     Dates: start: 20070108
  5. PROCRIT [Concomitant]
     Dosage: 40000 UNIT EVERY 1 WK
     Route: 065
     Dates: start: 20070430, end: 20070430
  6. LIPITOR [Concomitant]
     Dosage: UNSPECIFIED DOSE AND REGIMEN
     Route: 065
     Dates: start: 20070413
  7. DITROPAN [Concomitant]
     Dosage: UNSPECIFIED DOSE AND REGIMEN
     Route: 065
     Dates: start: 20070413
  8. FERROUS SULFATE TAB [Concomitant]
     Dosage: UNSPECIFIED DOSE AND REGIMEN
     Route: 065
     Dates: start: 20070425
  9. MULTI-VITAMINS [Concomitant]
     Dosage: UNSPECIFIED DOSE AND REGIMEN
     Route: 065
     Dates: start: 20070424
  10. MYCOPHENOLATE MOFETIL [Concomitant]
     Indication: PROPHYLAXIS AGAINST TRANSPLANT REJECTION
     Route: 048
     Dates: start: 20070205, end: 20070412
  11. MYCOPHENOLATE MOFETIL [Concomitant]
     Route: 048
     Dates: start: 20070413, end: 20070427
  12. MYCOPHENOLATE MOFETIL [Concomitant]
     Route: 048
     Dates: start: 20070428
  13. DAPSONE [Concomitant]
     Dosage: UNSPECIFIED DOSE AND REGIMEN
     Route: 065
     Dates: start: 20070409

REACTIONS (5)
  - ANAEMIA [None]
  - COMPLICATIONS OF TRANSPLANTED LIVER [None]
  - HEPATIC ENZYME INCREASED [None]
  - HEPATIC STEATOSIS [None]
  - HEPATITIS ACUTE [None]
